FAERS Safety Report 21102961 (Version 1)
Quarter: 2022Q3

REPORT INFORMATION
  Report Type: Other
  Country: CN (occurrence: None)
  Receive Date: 20220720
  Receipt Date: 20220720
  Transmission Date: 20221027
  Serious: Yes (Other)
  Sender: FDA-Public Use
  Company Number: CN-ROCHE-3138741

PATIENT
  Age: 64 Year
  Sex: Female

DRUGS (10)
  1. BEVACIZUMAB [Suspect]
     Active Substance: BEVACIZUMAB
     Indication: Rectal cancer
     Dosage: FOR 1.5 H IN THE FIRST CYCLE INTRAVENOUSLY INFUSION FOR 1 H IN THE SECOND CHEMOTHERAPY, AND INTRAVEN
     Route: 042
  2. OXALIPLATIN [Suspect]
     Active Substance: OXALIPLATIN
     Indication: Rectal cancer
     Route: 065
     Dates: start: 20190706, end: 20190930
  3. LEUCOVORIN CALCIUM [Suspect]
     Active Substance: LEUCOVORIN CALCIUM
     Indication: Rectal cancer
     Route: 065
     Dates: start: 20190706, end: 20190930
  4. LEUCOVORIN CALCIUM [Suspect]
     Active Substance: LEUCOVORIN CALCIUM
     Route: 042
     Dates: start: 2019
  5. IRINOTECAN [Suspect]
     Active Substance: IRINOTECAN
     Indication: Rectal cancer
     Dosage: 1 CYCLE OF CHEMOTHERAPY
     Route: 042
     Dates: start: 20191030
  6. IRINOTECAN [Suspect]
     Active Substance: IRINOTECAN
     Dosage: FOR DAY1
     Route: 042
     Dates: start: 2019
  7. RALTITREXED [Suspect]
     Active Substance: RALTITREXED
     Indication: Rectal cancer
     Dosage: 1 CYCLE OF CHEMOTHERAPY
     Route: 065
     Dates: start: 20191030
  8. LEUCOVORIN CALCIUM [Suspect]
     Active Substance: LEUCOVORIN CALCIUM
     Indication: Rectal cancer
     Dosage: FOR 6 CYCLE
     Route: 042
  9. FLUOROURACIL [Suspect]
     Active Substance: FLUOROURACIL
     Indication: Rectal cancer
     Route: 042
  10. FLUOROURACIL [Suspect]
     Active Substance: FLUOROURACIL
     Dosage: FOR 46 H
     Route: 042

REACTIONS (2)
  - Myelosuppression [Recovered/Resolved]
  - Gastrointestinal disorder [Recovered/Resolved]
